FAERS Safety Report 5062252-7 (Version None)
Quarter: 2006Q3

REPORT INFORMATION
  Report Type: 
  Country: None (occurrence: None)
  Receive Date: 20060726
  Receipt Date: 20060717
  Transmission Date: 20061208
  Serious: Yes (Hospitalization)
  Sender: FDA-Public Use
  Company Number: FR-BRISTOL-MYERS SQUIBB COMPANY-13445598

PATIENT
  Age: 48 Year
  Sex: Female

DRUGS (3)
  1. TAXOL [Suspect]
     Indication: BREAST CANCER
     Route: 042
     Dates: start: 20060113, end: 20060428
  2. TAXOTERE [Suspect]
     Route: 042
     Dates: start: 20060113, end: 20060428
  3. FARMORUBICIN [Suspect]
     Route: 042
     Dates: start: 20060113, end: 20060428

REACTIONS (1)
  - CARDIAC DISORDER [None]
